FAERS Safety Report 10855652 (Version 1)
Quarter: 2015Q1

REPORT INFORMATION
  Report Type: Spontaneous
  Country: US (occurrence: None)
  Receive Date: 20150218
  Receipt Date: 20150218
  Transmission Date: 20150721
  Serious: No
  Sender: FDA-Public Use
  Company Number: None

PATIENT
  Age: 46 Year
  Sex: Male
  Weight: 83.92 kg

DRUGS (1)
  1. ATOMOXETINE [Suspect]
     Active Substance: ATOMOXETINE
     Indication: ATTENTION DEFICIT/HYPERACTIVITY DISORDER
     Dosage: 80 MG Q AM, 20 MG Q AFTERNOON
     Route: 048
     Dates: start: 20140901, end: 20150217

REACTIONS (4)
  - Male orgasmic disorder [None]
  - Herpes zoster [None]
  - Premature ejaculation [None]
  - Urinary hesitation [None]

NARRATIVE: CASE EVENT DATE: 20150217
